FAERS Safety Report 21187612 (Version 2)
Quarter: 2022Q3

REPORT INFORMATION
  Report Type: Report from Study
  Country: BR (occurrence: BR)
  Receive Date: 20220808
  Receipt Date: 20220912
  Transmission Date: 20221027
  Serious: Yes (Disabling)
  Sender: FDA-Public Use
  Company Number: BR-ABBVIE-22K-020-4351640-00

PATIENT
  Sex: Female
  Weight: 62 kg

DRUGS (3)
  1. RINVOQ [Suspect]
     Active Substance: UPADACITINIB
     Indication: Rheumatoid arthritis
     Route: 048
  2. RINVOQ [Suspect]
     Active Substance: UPADACITINIB
     Dosage: IN THE MORNING
     Route: 048
     Dates: start: 20220613
  3. PREDNISOLONE [Concomitant]
     Active Substance: PREDNISOLONE
     Indication: Product used for unknown indication

REACTIONS (34)
  - Gait disturbance [Recovering/Resolving]
  - Retching [Recovering/Resolving]
  - Mouth injury [Recovering/Resolving]
  - Decreased appetite [Recovered/Resolved]
  - Pain in extremity [Recovering/Resolving]
  - Peripheral swelling [Not Recovered/Not Resolved]
  - Arthralgia [Not Recovered/Not Resolved]
  - Feeling abnormal [Recovering/Resolving]
  - Inflammation [Unknown]
  - Dry skin [Unknown]
  - Bone swelling [Recovering/Resolving]
  - Pain in jaw [Recovering/Resolving]
  - Mass [Recovering/Resolving]
  - Dysgeusia [Recovering/Resolving]
  - Weight decreased [Recovered/Resolved]
  - Hypovitaminosis [Unknown]
  - Hiatus hernia [Recovering/Resolving]
  - Eye swelling [Unknown]
  - Lacrimation increased [Unknown]
  - Joint swelling [Not Recovered/Not Resolved]
  - Bone pain [Not Recovered/Not Resolved]
  - Pain in extremity [Not Recovered/Not Resolved]
  - Lecithin-cholesterol acyltransferase deficiency [Recovered/Resolved]
  - Peripheral swelling [Recovered/Resolved]
  - Limb mass [Recovered/Resolved]
  - Hepatic steatosis [Recovered/Resolved]
  - Eye disorder [Recovering/Resolving]
  - Mobility decreased [Recovering/Resolving]
  - Feeling hot [Unknown]
  - Sinusitis [Recovering/Resolving]
  - Anaemia [Recovered/Resolved]
  - Pneumonia [Recovered/Resolved]
  - Infection [Unknown]
  - Drug ineffective [Recovering/Resolving]

NARRATIVE: CASE EVENT DATE: 20220101
